FAERS Safety Report 7274483-6 (Version None)
Quarter: 2011Q1

REPORT INFORMATION
  Report Type: 
  Country: None (occurrence: None)
  Receive Date: 20110204
  Receipt Date: 20110127
  Transmission Date: 20110831
  Serious: Yes (Other)
  Sender: FDA-Public Use
  Company Number: VI-ASTELLAS-2011US000438

PATIENT

DRUGS (2)
  1. PROGRAF [Suspect]
     Indication: LIVER TRANSPLANT
     Dosage: 3 MG, BID
     Route: 048
     Dates: start: 19981202
  2. PREDNISONE [Concomitant]
     Indication: LIVER TRANSPLANT
     Dosage: 5 MG, UID/QD
     Route: 048
     Dates: start: 19981202

REACTIONS (1)
  - VOLVULUS OF SMALL BOWEL [None]
